FAERS Safety Report 21693793 (Version 1)
Quarter: 2022Q4

REPORT INFORMATION
  Report Type: Spontaneous
  Country: JP (occurrence: JP)
  Receive Date: 20221207
  Receipt Date: 20221207
  Transmission Date: 20230113
  Serious: No
  Sender: FDA-Public Use
  Company Number: JP-GSK-JP2022JPN178805

PATIENT

DRUGS (4)
  1. SOTROVIMAB [Suspect]
     Active Substance: SOTROVIMAB
     Indication: COVID-19
     Dosage: 500 MG/DAY
     Route: 064
     Dates: start: 20220126, end: 20220126
  2. COMIRNATY [Suspect]
     Active Substance: TOZINAMERAN
     Indication: COVID-19 prophylaxis
     Dosage: 0.3 ML/DAY
     Route: 064
     Dates: start: 202107, end: 202107
  3. COMIRNATY [Suspect]
     Active Substance: TOZINAMERAN
     Indication: COVID-19 prophylaxis
     Dosage: 0.3 ML/DAY
     Route: 064
     Dates: start: 202107
  4. KAYTWO SYRUP [Concomitant]
     Indication: Vitamin supplementation
     Dosage: 2 MG/DAY
     Route: 048
     Dates: start: 20220404, end: 20220407

REACTIONS (4)
  - Ill-defined disorder [Unknown]
  - Skin discolouration [Unknown]
  - Infantile haemangioma [Unknown]
  - Foetal exposure during pregnancy [Unknown]
